FAERS Safety Report 6073351-5 (Version None)
Quarter: 2009Q1

REPORT INFORMATION
  Report Type: 
  Country: None (occurrence: None)
  Receive Date: 20090211
  Receipt Date: 20090129
  Transmission Date: 20090719
  Serious: Yes (Hospitalization, Other)
  Sender: FDA-Public Use
  Company Number: US-ROCHE-607966

PATIENT
  Sex: Female
  Weight: 56.8 kg

DRUGS (1)
  1. CAPECITABINE [Suspect]
     Route: 048
     Dates: start: 20080215, end: 20080229

REACTIONS (4)
  - ABDOMINAL PAIN [None]
  - BREAST CANCER METASTATIC [None]
  - DIARRHOEA [None]
  - DRUG INEFFECTIVE [None]
